FAERS Safety Report 5946460-6 (Version None)
Quarter: 2008Q4

REPORT INFORMATION
  Report Type: 
  Country: None (occurrence: None)
  Receive Date: 20081110
  Receipt Date: 20081031
  Transmission Date: 20090506
  Serious: Yes (Death, Congenital Anomaly)
  Sender: FDA-Public Use
  Company Number: A0683106A

PATIENT
  Sex: Male

DRUGS (4)
  1. PAXIL [Suspect]
     Indication: DEPRESSION
     Dosage: 25MG PER DAY
     Dates: start: 20000101, end: 20000801
  2. AMITRIPTYLINE HCL [Concomitant]
  3. AMBIEN [Concomitant]
  4. VITAMIN TAB [Concomitant]

REACTIONS (19)
  - CAESAREAN SECTION [None]
  - COARCTATION OF THE AORTA [None]
  - DEATH NEONATAL [None]
  - DRUG EXPOSURE DURING PREGNANCY [None]
  - FOETAL GROWTH RETARDATION [None]
  - HYPOPLASTIC LEFT HEART SYNDROME [None]
  - INDUCED LABOUR [None]
  - INTRAVENTRICULAR HAEMORRHAGE [None]
  - INTRAVENTRICULAR HAEMORRHAGE NEONATAL [None]
  - LATE METABOLIC ACIDOSIS OF NEWBORN [None]
  - MATERNAL DRUGS AFFECTING FOETUS [None]
  - METABOLIC ACIDOSIS [None]
  - MULTI-ORGAN DISORDER [None]
  - MULTI-ORGAN FAILURE [None]
  - NEONATAL RESPIRATORY DISTRESS SYNDROME [None]
  - RESPIRATORY DISTRESS [None]
  - SEPSIS [None]
  - SEPSIS NEONATAL [None]
  - TRICUSPID VALVE INCOMPETENCE [None]
